FAERS Safety Report 5051118-4 (Version None)
Quarter: 2006Q3

REPORT INFORMATION
  Report Type: 
  Country: None (occurrence: None)
  Receive Date: 20060714
  Receipt Date: 20060705
  Transmission Date: 20061208
  Serious: Yes (Death, Hospitalization)
  Sender: FDA-Public Use
  Company Number: DE-JNJFOC-20060700973

PATIENT
  Age: 81 Year
  Sex: Female
  Weight: 50 kg

DRUGS (8)
  1. RISPERDAL [Suspect]
     Indication: SLEEP DISORDER
     Route: 048
  2. RISPERDAL [Suspect]
     Indication: RESTLESSNESS
     Route: 048
  3. RISPERDAL [Suspect]
     Indication: CONFUSIONAL STATE
     Route: 048
  4. CAPTROPRIL [Concomitant]
  5. ISDN [Concomitant]
  6. TURFA [Concomitant]
  7. VIGANTOLELTEN [Concomitant]
  8. NAFLOURID [Concomitant]

REACTIONS (10)
  - BLOOD POTASSIUM INCREASED [None]
  - BRADYCARDIA [None]
  - CIRCULATORY COLLAPSE [None]
  - CONDITION AGGRAVATED [None]
  - DEMENTIA [None]
  - DEPRESSED LEVEL OF CONSCIOUSNESS [None]
  - DRUG LEVEL INCREASED [None]
  - EXTRAPYRAMIDAL DISORDER [None]
  - FAECAL INCONTINENCE [None]
  - HYPOGLYCAEMIA [None]
